FAERS Safety Report 8920894 (Version 1)
Quarter: 2012Q4

REPORT INFORMATION
  Report Type: 
  Country: MX (occurrence: MX)
  Receive Date: 20121121
  Receipt Date: 20121121
  Transmission Date: 20130627
  Serious: Yes (Death)
  Sender: FDA-Public Use
  Company Number: MX-GLAXOSMITHKLINE-A1002293A

PATIENT
  Sex: Female
  Weight: 45 kg

DRUGS (3)
  1. SERETIDE [Suspect]
     Indication: RESPIRATORY DISORDER
     Dosage: 2PUFF Per day
     Route: 055
  2. OXYGEN [Concomitant]
  3. MICARDIS PLUS [Concomitant]

REACTIONS (2)
  - Respiratory failure [Fatal]
  - Emphysema [Fatal]
